FAERS Safety Report 12919570 (Version 1)
Quarter: 2016Q4

REPORT INFORMATION
  Report Type: Spontaneous
  Country: US (occurrence: US)
  Receive Date: 20161103
  Receipt Date: 20161103
  Transmission Date: 20170207
  Serious: No
  Sender: FDA-Public Use
  Company Number: None

PATIENT
  Sex: Female

DRUGS (1)
  1. CAPECITABINE 500MG ACCORD [Suspect]
     Active Substance: CAPECITABINE
     Indication: LUNG ADENOCARCINOMA
     Dosage: BID FOR 2 WEEKS ON/1 WEEK OFF
     Route: 048
     Dates: start: 20160910

REACTIONS (1)
  - Skin exfoliation [None]
